FAERS Safety Report 19695696 (Version 1)
Quarter: 2021Q3

REPORT INFORMATION
  Report Type: Spontaneous
  Country: US (occurrence: US)
  Receive Date: 20210813
  Receipt Date: 20210813
  Transmission Date: 20211014
  Serious: No
  Sender: FDA-Public Use
  Company Number: None

PATIENT
  Age: 34 Year
  Sex: Female
  Weight: 65.25 kg

DRUGS (10)
  1. TYSABRI [Concomitant]
     Active Substance: NATALIZUMAB
  2. VITAMIN D [Concomitant]
     Active Substance: VITAMIN D NOS
  3. LANSOPRAZOLE. [Concomitant]
     Active Substance: LANSOPRAZOLE
  4. MULTIVITAMIN [Concomitant]
     Active Substance: VITAMINS
  5. LORAZEPAM (GENERIC FOR ATIVAN) [Suspect]
     Active Substance: LORAZEPAM
     Indication: ANXIETY
     Dosage: ?          QUANTITY:1 TABLET(S);OTHER FREQUENCY:PRIOR TO MRI;?
     Route: 048
     Dates: start: 20210812, end: 20210812
  6. AVIANE [Concomitant]
     Active Substance: ETHINYL ESTRADIOL\LEVONORGESTREL
  7. IBUPROFEN. [Concomitant]
     Active Substance: IBUPROFEN
  8. CLARITIN [Concomitant]
     Active Substance: LORATADINE
  9. VITAMIN B COMPLEX [Concomitant]
     Active Substance: CYANOCOBALAMIN\DEXPANTHENOL\NIACINAMIDE\PYRIDOXINE HYDROCHLORIDE\RIBOFLAVIN 5^-PHOSPHATE SODIUM\THIAMINE HYDROCHLORIDE\VITAMIN B COMPLEX
  10. IRON SUPPLEMENT [Concomitant]
     Active Substance: IRON

REACTIONS (4)
  - Drug ineffective [None]
  - Somnolence [None]
  - Product quality issue [None]
  - Fatigue [None]

NARRATIVE: CASE EVENT DATE: 20210812
